FAERS Safety Report 18747385 (Version 4)
Quarter: 2022Q3

REPORT INFORMATION
  Report Type: Spontaneous
  Country: GB (occurrence: GB)
  Receive Date: 20210115
  Receipt Date: 20220714
  Transmission Date: 20221027
  Serious: Yes (Hospitalization)
  Sender: FDA-Public Use
  Company Number: GB-GLAXOSMITHKLINE-GB2021001576

PATIENT

DRUGS (1)
  1. NICOTINELL [Suspect]
     Active Substance: NICOTINE
     Indication: Smoking cessation therapy
     Dosage: UNK
     Dates: start: 20200725

REACTIONS (6)
  - Medical device site erosion [Unknown]
  - Application site swelling [Unknown]
  - Injury [Unknown]
  - Skin graft [Unknown]
  - Product adhesion issue [Unknown]
  - Product complaint [Unknown]
